FAERS Safety Report 6643137-9 (Version None)
Quarter: 2010Q1

REPORT INFORMATION
  Report Type: 
  Country: None (occurrence: None)
  Receive Date: 20100319
  Receipt Date: 20100309
  Transmission Date: 20100710
  Serious: Yes (Hospitalization)
  Sender: FDA-Public Use
  Company Number: PHHY2010FR14758

PATIENT
  Age: 44 Year
  Sex: Male

DRUGS (3)
  1. VOLTAREN [Suspect]
  2. AUGMENTIN '125' [Concomitant]
     Indication: ERYTHEMA
  3. BRISTOPEN [Concomitant]
     Indication: SKIN LESION

REACTIONS (4)
  - DERMO-HYPODERMITIS [None]
  - INFLAMMATION [None]
  - PYREXIA [None]
  - SOFT TISSUE DISORDER [None]
